FAERS Safety Report 8247914-2 (Version None)
Quarter: 2012Q1

REPORT INFORMATION
  Report Type: 
  Country: None (occurrence: None)
  Receive Date: 20120330
  Receipt Date: 20120327
  Transmission Date: 20120608
  Serious: Yes (Hospitalization, Disabling, Other)
  Sender: FDA-Public Use
  Company Number: US-MERCK-1108USA02429

PATIENT
  Age: 51 Year
  Sex: Female
  Weight: 66 kg

DRUGS (12)
  1. FOSAMAX [Suspect]
     Indication: OSTEOPOROSIS
     Route: 048
     Dates: start: 20030101, end: 20070301
  2. FOSAMAX [Suspect]
     Route: 048
     Dates: start: 20070401, end: 20080601
  3. FOSAMAX [Suspect]
     Route: 048
     Dates: end: 20091101
  4. FOSAMAX [Suspect]
     Indication: OSTEOPENIA
     Route: 048
     Dates: start: 20030101, end: 20070301
  5. FOSAMAX [Suspect]
     Route: 048
     Dates: start: 20070401, end: 20080601
  6. ALENDRONATE SODIUM [Suspect]
     Indication: OSTEOPENIA
     Route: 048
     Dates: start: 20080630, end: 20090823
  7. WELLBUTRIN [Concomitant]
     Indication: DEPRESSION
     Route: 065
     Dates: start: 19970101
  8. ZOLOFT [Concomitant]
     Indication: DEPRESSION
     Route: 065
     Dates: start: 19970101
  9. CALCIUM (UNSPECIFIED) [Concomitant]
     Route: 065
  10. TRIAMTERENE [Concomitant]
     Indication: DIURETIC THERAPY
     Route: 065
     Dates: start: 20030101, end: 20080101
  11. PLAVIX [Concomitant]
     Indication: ANTIPLATELET THERAPY
     Route: 065
     Dates: start: 20030101
  12. VITAMIN D (UNSPECIFIED) [Concomitant]
     Route: 065

REACTIONS (36)
  - RADIUS FRACTURE [None]
  - BLOOD ALKALINE PHOSPHATASE INCREASED [None]
  - CARDIAC FAILURE CONGESTIVE [None]
  - CHEST DISCOMFORT [None]
  - VENOUS INSUFFICIENCY [None]
  - DYSPNOEA [None]
  - ISCHAEMIC STROKE [None]
  - TOOTH FRACTURE [None]
  - STRESS URINARY INCONTINENCE [None]
  - IMPAIRED HEALING [None]
  - ROTATOR CUFF SYNDROME [None]
  - EPISTAXIS [None]
  - JOINT INJURY [None]
  - LIGAMENT SPRAIN [None]
  - RENAL CYST [None]
  - PERIODONTAL DISEASE [None]
  - DENTAL FISTULA [None]
  - FALL [None]
  - FOOT FRACTURE [None]
  - ADVERSE EVENT [None]
  - MITRAL VALVE STENOSIS [None]
  - ABDOMINAL PAIN [None]
  - CELLULITIS [None]
  - CEREBRAL SMALL VESSEL ISCHAEMIC DISEASE [None]
  - MIGRAINE WITH AURA [None]
  - CONTUSION [None]
  - DYSAESTHESIA [None]
  - WRIST FRACTURE [None]
  - TOOTH ABSCESS [None]
  - FROSTBITE [None]
  - HYPERLIPIDAEMIA [None]
  - OSTEONECROSIS OF JAW [None]
  - COLONIC POLYP [None]
  - BONE DISORDER [None]
  - BRONCHITIS [None]
  - TRANSIENT ISCHAEMIC ATTACK [None]
